FAERS Safety Report 7162094-2 (Version None)
Quarter: 2010Q4

REPORT INFORMATION
  Report Type: 
  Country: None (occurrence: None)
  Receive Date: 20101215
  Receipt Date: 20090804
  Transmission Date: 20110411
  Serious: Yes (Hospitalization, Other)
  Sender: FDA-Public Use
  Company Number: US-PFIZER INC-2009205560

PATIENT
  Sex: Female
  Weight: 104 kg

DRUGS (12)
  1. LYRICA [Suspect]
     Indication: FIBROMYALGIA
     Dosage: 75 MG, 2X/DAY
     Dates: start: 20090101
  2. HYDROCHLOROTHIAZIDE [Concomitant]
     Indication: HYPERTENSION
     Dosage: 12.5 DAILY
     Dates: start: 20040101
  3. ALISKIREN [Concomitant]
     Dosage: UNK
  4. VALSARTAN [Concomitant]
     Dosage: 160 TWICE DAILY
  5. PREMARIN [Concomitant]
     Dosage: 0.625 DAILY
  6. CALCIUM [Concomitant]
     Dosage: 1000 PER DAY
  7. CENTRUM SILVER [Concomitant]
  8. VITAMIN D [Concomitant]
     Dosage: 1000 PER DAY
  9. MAGNESIUM [Concomitant]
     Dosage: 2650 DAILY
  10. ALLOPURINOL [Concomitant]
     Dosage: 200 DAILY
  11. ACYCLOVIR SODIUM [Concomitant]
     Dosage: 200 DAILY
  12. OMEPRAZOLE [Concomitant]
     Dosage: UNK

REACTIONS (3)
  - BLOOD CREATININE INCREASED [None]
  - BLOOD UREA INCREASED [None]
  - RENAL FAILURE [None]
